FAERS Safety Report 8814037 (Version 1)
Quarter: 2012Q4

REPORT INFORMATION
  Report Type: Spontaneous
  Country: FR (occurrence: None)
  Receive Date: 20120925
  Receipt Date: 20120925
  Transmission Date: 20130627
  Serious: Yes (Other)
  Sender: FDA-Public Use
  Company Number: 7160998

PATIENT
  Age: 78 Year
  Sex: Female

DRUGS (8)
  1. LEVOTHYROX (LEVOTHYROXINE SODIUM) INFUSION [Suspect]
     Route: 048
  2. PREVISCAN [Suspect]
     Route: 048
  3. METFORMIN (METFORMIN) [Suspect]
     Route: 048
  4. LASILIX [Suspect]
     Route: 048
  5. TRACLEER [Suspect]
  6. REVATIO [Suspect]
     Route: 048
  7. HOMEOPATHY [Suspect]
     Route: 048
  8. VENTAVIS [Suspect]
     Route: 048
     Dates: start: 201109

REACTIONS (1)
  - Eosinophilia [None]
